FAERS Safety Report 5464025-X (Version None)
Quarter: 2007Q3

REPORT INFORMATION
  Report Type: 
  Country: None (occurrence: None)
  Receive Date: 20070921
  Receipt Date: 20070917
  Transmission Date: 20080115
  Serious: Yes (Death)
  Sender: FDA-Public Use
  Company Number: CA-JNJFOC-20070902837

PATIENT
  Age: 13 Month
  Sex: Female

DRUGS (3)
  1. TYLENOL (CAPLET) [Suspect]
     Route: 048
  2. TYLENOL (CAPLET) [Suspect]
     Indication: PYREXIA
     Dosage: DOSE AND FREQUENCY UNKNOWN
     Route: 048
  3. TEMPRA [Suspect]
     Indication: PYREXIA
     Dosage: UNKNOWN

REACTIONS (2)
  - CONGENITAL ANOMALY [None]
  - HAEMORRHAGE [None]
